FAERS Safety Report 6146323-X (Version None)
Quarter: 2009Q2

REPORT INFORMATION
  Report Type: 
  Country: None (occurrence: None)
  Receive Date: 20090403
  Receipt Date: 20090403
  Transmission Date: 20091009
  Serious: No
  Sender: FDA-Public Use
  Company Number: None

PATIENT
  Sex: Female
  Weight: 77.1115 kg

DRUGS (2)
  1. BONIVA [Suspect]
     Dosage: 150 MG ONCE MONTHLY ORAL
     Route: 048
     Dates: start: 20081001, end: 20081201
  2. BONIVA [Suspect]
     Dosage: 150 MG ONCE MONTHLY ORAL
     Route: 048
     Dates: start: 20090301

REACTIONS (5)
  - ARTHRALGIA [None]
  - DISCOMFORT [None]
  - JAW DISORDER [None]
  - MASTICATION DISORDER [None]
  - PAIN IN JAW [None]
